FAERS Safety Report 23741883 (Version 1)
Quarter: 2024Q2

REPORT INFORMATION
  Report Type: Spontaneous
  Country: DE (occurrence: DE)
  Receive Date: 20240415
  Receipt Date: 20240415
  Transmission Date: 20240716
  Serious: Yes (Other)
  Sender: FDA-Public Use
  Company Number: None

PATIENT
  Age: 24 Year
  Sex: Female
  Weight: 60 kg

DRUGS (1)
  1. KYLEENA [Suspect]
     Active Substance: LEVONORGESTREL
     Indication: Contraception
     Dosage: 17.5?G/DAY
     Route: 015
     Dates: start: 20220622, end: 20240325

REACTIONS (22)
  - Suicidal ideation [Not Recovered/Not Resolved]
  - Seizure [Not Recovered/Not Resolved]
  - Fatigue [Not Recovered/Not Resolved]
  - Insomnia [None]
  - Genital haemorrhage [Recovered/Resolved]
  - Depression [Not Recovered/Not Resolved]
  - Panic attack [Not Recovered/Not Resolved]
  - Ocular icterus [Not Recovered/Not Resolved]
  - Brain fog [Not Recovered/Not Resolved]
  - Amenorrhoea [None]
  - Myalgia [Not Recovered/Not Resolved]
  - Palpitations [Not Recovered/Not Resolved]
  - Dyspnoea [Not Recovered/Not Resolved]
  - Restlessness [Not Recovered/Not Resolved]
  - Hypoaesthesia [Not Recovered/Not Resolved]
  - Acne [None]
  - Sleep disorder [Not Recovered/Not Resolved]
  - Alopecia [None]
  - Burnout syndrome [Not Recovered/Not Resolved]
  - Back pain [None]
  - Depressed mood [None]
  - Thyroid disorder [None]

NARRATIVE: CASE EVENT DATE: 20220601
